FAERS Safety Report 10524638 (Version 1)
Quarter: 2014Q4

REPORT INFORMATION
  Report Type: Spontaneous
  Country: US (occurrence: None)
  Receive Date: 20141015
  Receipt Date: 20141015
  Transmission Date: 20150528
  Serious: No
  Sender: FDA-Public Use
  Company Number: None

PATIENT
  Age: 54 Year
  Sex: Female
  Weight: 61.4 kg

DRUGS (2)
  1. CISPLATIN. [Suspect]
     Active Substance: CISPLATIN
     Dates: start: 20140929
  2. TRIBUSS [Concomitant]

REACTIONS (3)
  - Lymphocyte count decreased [None]
  - Dysuria [None]
  - Heart rate decreased [None]

NARRATIVE: CASE EVENT DATE: 20140923
